FAERS Safety Report 10089824 (Version 1)
Quarter: 2014Q2

REPORT INFORMATION
  Report Type: Spontaneous
  Country: US (occurrence: US)
  Receive Date: 20140421
  Receipt Date: 20140421
  Transmission Date: 20141212
  Serious: No
  Sender: FDA-Public Use
  Company Number: US-PFIZER INC-2014107668

PATIENT
  Age: 62 Year
  Sex: Male
  Weight: 113.4 kg

DRUGS (4)
  1. GLIPIZIDE [Suspect]
     Indication: DIABETES MELLITUS
     Dosage: 10 MG, 2X/DAY
  2. METFORMIN HCL [Suspect]
     Indication: DIABETES MELLITUS
     Dosage: 1000 MG, DAILY
  3. HUMULIN R [Suspect]
     Indication: DIABETES MELLITUS
     Dosage: UNK
  4. HUMULIN N [Suspect]
     Indication: DIABETES MELLITUS
     Dosage: UNK

REACTIONS (1)
  - Blood glucose fluctuation [Unknown]
